FAERS Safety Report 19083212 (Version 1)
Quarter: 2021Q2

REPORT INFORMATION
  Report Type: Spontaneous
  Country: US (occurrence: US)
  Receive Date: 20210401
  Receipt Date: 20210401
  Transmission Date: 20210717
  Serious: Yes (Life-Threatening, Hospitalization, Other)
  Sender: FDA-Public Use
  Company Number: None

PATIENT
  Age: 30 Year
  Sex: Female
  Weight: 83.91 kg

DRUGS (10)
  1. DOCUSATE [Concomitant]
     Active Substance: DOCUSATE
  2. LEXAPRO [Concomitant]
     Active Substance: ESCITALOPRAM OXALATE
  3. PRENATAL VITAMIN [Concomitant]
     Active Substance: VITAMINS
  4. TRAZODONE [Concomitant]
     Active Substance: TRAZODONE HYDROCHLORIDE
  5. N?ACETYLCYSTEINE [Concomitant]
     Active Substance: ACETYLCYSTEINE
  6. IBUPROFEN. [Concomitant]
     Active Substance: IBUPROFEN
  7. GLUCOSAMINE AND CHONDROITIN COMPLEX [Concomitant]
  8. LILETTA [Suspect]
     Active Substance: LEVONORGESTREL
     Dates: start: 20190418, end: 20210310
  9. PHENTERMINE. [Concomitant]
     Active Substance: PHENTERMINE
  10. ACETAMINOPHEN. [Concomitant]
     Active Substance: ACETAMINOPHEN

REACTIONS (4)
  - Abortion spontaneous [None]
  - Complication of device removal [None]
  - Pregnancy with contraceptive device [None]
  - Foetal death [None]

NARRATIVE: CASE EVENT DATE: 20210317
